FAERS Safety Report 8853774 (Version 1)
Quarter: 2012Q4

REPORT INFORMATION
  Report Type: 
  Country: US (occurrence: US)
  Receive Date: 20121023
  Receipt Date: 20121023
  Transmission Date: 20130627
  Serious: Yes (Death, Other)
  Sender: FDA-Public Use
  Company Number: US-ELI_LILLY_AND_COMPANY-US201210005491

PATIENT
  Age: 81 Year
  Sex: Female

DRUGS (1)
  1. ZYPREXA [Suspect]
     Dosage: 5 mg, qd
     Route: 048

REACTIONS (5)
  - Gastric disorder [Fatal]
  - Ischaemia [Unknown]
  - Infection [Unknown]
  - Abdominal pain upper [Unknown]
  - Vomiting [Unknown]
